FAERS Safety Report 19390696 (Version 2)
Quarter: 2021Q2

REPORT INFORMATION
  Report Type: Spontaneous
  Country: US (occurrence: US)
  Receive Date: 20210608
  Receipt Date: 20210611
  Transmission Date: 20210717
  Serious: Yes (Death)
  Sender: FDA-Public Use
  Company Number: US-ROCHE-2843607

PATIENT
  Age: 44 Year
  Sex: Female

DRUGS (18)
  1. BACLOFEN. [Concomitant]
     Active Substance: BACLOFEN
  2. KETOROLAC [Concomitant]
     Active Substance: KETOROLAC TROMETHAMINE
  3. VALACYCLOVIR [Concomitant]
     Active Substance: VALACYCLOVIR HYDROCHLORIDE
  4. POTASSIUM CHLORIDE. [Concomitant]
     Active Substance: POTASSIUM CHLORIDE
  5. CLONAZEPAM. [Suspect]
     Active Substance: CLONAZEPAM
     Indication: PRODUCT USED FOR UNKNOWN INDICATION
     Route: 065
  6. VALIUM [Suspect]
     Active Substance: DIAZEPAM
     Indication: PRODUCT USED FOR UNKNOWN INDICATION
     Route: 065
  7. VOLTAREN [Concomitant]
     Active Substance: DICLOFENAC SODIUM
  8. COVID?19 VACCINE [Concomitant]
  9. TYLENOL WITH CODEINE [Concomitant]
     Active Substance: ACETAMINOPHEN\CODEINE PHOSPHATE
  10. CYMBALTA [Concomitant]
     Active Substance: DULOXETINE HYDROCHLORIDE
  11. HORIZANT [Concomitant]
     Active Substance: GABAPENTIN ENACARBIL
  12. ARMOUR THYROID [Concomitant]
     Active Substance: THYROID, PORCINE
  13. PROMETHAZINE [Concomitant]
     Active Substance: PROMETHAZINE HYDROCHLORIDE
  14. AMPYRA [Concomitant]
     Active Substance: DALFAMPRIDINE
  15. ARMODAFINIL. [Concomitant]
     Active Substance: ARMODAFINIL
  16. TRAZODONE [Concomitant]
     Active Substance: TRAZODONE HYDROCHLORIDE
  17. OCREVUS [Suspect]
     Active Substance: OCRELIZUMAB
     Indication: RELAPSING MULTIPLE SCLEROSIS
     Route: 042
     Dates: start: 201712
  18. ACYCLOVIR. [Concomitant]
     Active Substance: ACYCLOVIR

REACTIONS (3)
  - Oral herpes [Unknown]
  - COVID-19 [Fatal]
  - Respiratory arrest [Fatal]

NARRATIVE: CASE EVENT DATE: 202104
